FAERS Safety Report 8353253-1 (Version None)
Quarter: 2012Q2

REPORT INFORMATION
  Report Type: 
  Country: None (occurrence: None)
  Receive Date: 20120511
  Receipt Date: 20120507
  Transmission Date: 20120825
  Serious: Yes (Hospitalization)
  Sender: FDA-Public Use
  Company Number: US-BAYER-2011-025437

PATIENT
  Age: 24 Year
  Sex: Female

DRUGS (10)
  1. YASMIN [Suspect]
     Indication: CONTRACEPTION
     Dosage: UNK
     Dates: start: 20080601, end: 20090401
  2. TOPAMAX [Concomitant]
  3. POLY IRON [Concomitant]
  4. HYDROCODONE BITARTRATE [Concomitant]
  5. IBUPROFEN [Concomitant]
     Dosage: UNK UNK, PRN
  6. DROSPIRENONE AND ETHINYL ESTRADIOL [Suspect]
     Indication: CONTRACEPTION
     Dosage: UNK
     Dates: start: 20080601, end: 20090401
  7. PEPCID [Concomitant]
  8. IMITREX [Concomitant]
  9. VICODIN [Concomitant]
  10. GABAPENTIN [Concomitant]

REACTIONS (7)
  - ANXIETY [None]
  - INJURY [None]
  - PULMONARY EMBOLISM [None]
  - PAIN [None]
  - EMOTIONAL DISTRESS [None]
  - DEEP VEIN THROMBOSIS [None]
  - GENERAL PHYSICAL HEALTH DETERIORATION [None]
